FAERS Safety Report 14994545 (Version 1)
Quarter: 2018Q2

REPORT INFORMATION
  Report Type: Report from Study
  Country: US (occurrence: US)
  Receive Date: 20180611
  Receipt Date: 20180611
  Transmission Date: 20180711
  Serious: Yes (Hospitalization, Other)
  Sender: FDA-Public Use
  Company Number: US-GILEAD-2018-0343205

PATIENT
  Age: 33 Year
  Sex: Female

DRUGS (6)
  1. SPIRONOLACTON [Concomitant]
     Active Substance: SPIRONOLACTONE
  2. SILDENAFIL. [Concomitant]
     Active Substance: SILDENAFIL
  3. FUROSEMIDE. [Concomitant]
     Active Substance: FUROSEMIDE
  4. POTASSIUM CHLORIDE. [Concomitant]
     Active Substance: POTASSIUM CHLORIDE
  5. TRIAMCINOLONE [Concomitant]
     Active Substance: TRIAMCINOLONE
  6. AMBRISENTAN [Suspect]
     Active Substance: AMBRISENTAN
     Indication: PULMONARY HYPERTENSION
     Dosage: 10 MG, QD
     Route: 065
     Dates: start: 20180109

REACTIONS (1)
  - Lung infection [Recovered/Resolved]

NARRATIVE: CASE EVENT DATE: 201805
